FAERS Safety Report 5818742-X (Version None)
Quarter: 2008Q3

REPORT INFORMATION
  Report Type: 
  Country: None (occurrence: None)
  Receive Date: 20080717
  Receipt Date: 20080717
  Transmission Date: 20090109
  Serious: Yes (Hospitalization)
  Sender: FDA-Public Use
  Company Number: None

PATIENT
  Age: 65 Year
  Sex: Male
  Weight: 93 kg

DRUGS (2)
  1. BUPROPION HCL [Suspect]
     Indication: MANIA
     Dosage: 150 MG AM PO
     Route: 048
     Dates: start: 20060728
  2. VENLAFAXINE HCL [Suspect]
     Dosage: 300 MG AT BEDTIME PO
     Route: 048
     Dates: start: 20040106

REACTIONS (2)
  - ABDOMINAL PAIN LOWER [None]
  - CONSTIPATION [None]
